FAERS Safety Report 7555156-9 (Version None)
Quarter: 2011Q2

REPORT INFORMATION
  Report Type: 
  Country: None (occurrence: None)
  Receive Date: 20110617
  Receipt Date: 20110605
  Transmission Date: 20111010
  Serious: Yes (Hospitalization)
  Sender: FDA-Public Use
  Company Number: IT-JNJFOC-20110603122

PATIENT
  Sex: Male

DRUGS (3)
  1. LENIRIT [Concomitant]
     Indication: DERMATITIS
     Route: 061
     Dates: start: 20110421, end: 20110421
  2. CETIRIZINE HCL [Suspect]
     Route: 048
  3. CETIRIZINE HCL [Suspect]
     Indication: DERMATITIS
     Route: 048
     Dates: start: 20110421, end: 20110421

REACTIONS (3)
  - DYSPNOEA [None]
  - HYPERHIDROSIS [None]
  - ASTHENIA [None]
